FAERS Safety Report 5795395-0 (Version None)
Quarter: 2008Q2

REPORT INFORMATION
  Report Type: 
  Country: None (occurrence: None)
  Receive Date: 20080601
  Receipt Date: 20080124
  Transmission Date: 20081010
  Serious: No
  Sender: FDA-Public Use
  Company Number: US200801005552

PATIENT
  Age: 70 Year
  Sex: Male

DRUGS (10)
  1. BYETTA [Suspect]
     Indication: TYPE 2 DIABETES MELLITUS
     Dosage: 5 UG, 2/D, SUBCUTANEOUS ; 5 UG, DAILY (1/D), SUBCUTANEOUS
     Route: 058
     Dates: start: 20071101, end: 20080120
  2. BYETTA [Suspect]
     Indication: TYPE 2 DIABETES MELLITUS
     Dosage: 5 UG, 2/D, SUBCUTANEOUS ; 5 UG, DAILY (1/D), SUBCUTANEOUS
     Route: 058
     Dates: start: 20080120
  3. LANTUS [Concomitant]
  4. ALLOPURINOL [Concomitant]
  5. NORVASC [Concomitant]
  6. OMEPRAZOLE [Concomitant]
  7. INDOMETHACIN [Concomitant]
  8. QUINAPRIL HCL [Concomitant]
  9. BABY ASPIRIN (ACETYLSALCYLIC ACID) [Concomitant]
  10. EYE DROPS (TETRYZOLINE HYDROCHLORIDE) [Concomitant]

REACTIONS (4)
  - ABDOMINAL PAIN UPPER [None]
  - DIARRHOEA [None]
  - ERUCTATION [None]
  - HYPERCHLORHYDRIA [None]
